FAERS Safety Report 8020291-8 (Version None)
Quarter: 2012Q1

REPORT INFORMATION
  Report Type: 
  Country: None (occurrence: None)
  Receive Date: 20120103
  Receipt Date: 20111219
  Transmission Date: 20120608
  Serious: Yes (Congenital Anomaly)
  Sender: FDA-Public Use
  Company Number: HU-ROCHE-1026875

PATIENT

DRUGS (3)
  1. MEPHENYTOIN [Suspect]
     Indication: EPILEPSY
  2. DIAZEPAM [Suspect]
     Indication: EPILEPSY
     Route: 064
  3. CARBAMAZEPINE [Suspect]
     Indication: EPILEPSY

REACTIONS (2)
  - MATERNAL EXPOSURE TIMING UNSPECIFIED [None]
  - CLEFT LIP [None]
